FAERS Safety Report 5911975-3 (Version None)
Quarter: 2008Q4

REPORT INFORMATION
  Report Type: 
  Country: None (occurrence: None)
  Receive Date: 20081008
  Receipt Date: 20081001
  Transmission Date: 20090506
  Serious: Yes (Hospitalization)
  Sender: FDA-Public Use
  Company Number: PHHY2008JP20988

PATIENT
  Sex: Female
  Weight: 50 kg

DRUGS (5)
  1. VOLTAREN [Suspect]
     Indication: PROCEDURAL PAIN
     Dosage: 75 MG/DAY
     Route: 048
     Dates: start: 20080904, end: 20080904
  2. FAROM [Suspect]
     Indication: INFECTION PROPHYLAXIS
     Dosage: 3 DF, QID
     Route: 048
     Dates: start: 20080903, end: 20080905
  3. STRONG NEO-MINOPHAGEN C [Concomitant]
  4. NEUROTROPIN [Concomitant]
  5. TATHION [Concomitant]
     Dosage: 200 MG

REACTIONS (15)
  - ANAPHYLACTIC SHOCK [None]
  - ASTHMA [None]
  - BLOOD GLUCOSE INCREASED [None]
  - CHOKING SENSATION [None]
  - DIABETES MELLITUS [None]
  - DISCOMFORT [None]
  - DYSPNOEA [None]
  - GENERALISED ERYTHEMA [None]
  - HYPOTENSION [None]
  - LYMPHOCYTE STIMULATION TEST POSITIVE [None]
  - NAUSEA [None]
  - OXYGEN SATURATION DECREASED [None]
  - PRURITUS GENERALISED [None]
  - RASH [None]
  - VOMITING [None]
